FAERS Safety Report 24412910 (Version 3)
Quarter: 2024Q4

REPORT INFORMATION
  Report Type: Spontaneous
  Country: CA (occurrence: CA)
  Receive Date: 20241008
  Receipt Date: 20241122
  Transmission Date: 20250115
  Serious: Yes (Other)
  Sender: DAIICHI
  Company Number: CA-AstraZeneca-CH-00709163A

PATIENT
  Sex: Female

DRUGS (1)
  1. TRASTUZUMAB DERUXTECAN [Suspect]
     Active Substance: TRASTUZUMAB DERUXTECAN
     Indication: HER2 positive breast cancer
     Dosage: 290 MG, ONCE EVERY 3 WK
     Route: 042

REACTIONS (5)
  - Anaemia [Unknown]
  - Creatinine renal clearance increased [Unknown]
  - Renal failure [Unknown]
  - Thrombocytopenia [Unknown]
  - Off label use [Unknown]
